FAERS Safety Report 17482038 (Version 1)
Quarter: 2020Q1

REPORT INFORMATION
  Report Type: Spontaneous
  Country: FR (occurrence: FR)
  Receive Date: 20200302
  Receipt Date: 20200302
  Transmission Date: 20200409
  Serious: Yes (Death, Hospitalization)
  Sender: FDA-Public Use
  Company Number: FR-ACCORD-174126

PATIENT
  Age: 82 Year
  Sex: Male
  Weight: 65 kg

DRUGS (2)
  1. OXALIPLATIN ACCORD [Suspect]
     Active Substance: OXALIPLATIN
     Indication: OESOPHAGEAL ADENOCARCINOMA
     Dosage: 85 MG / M2 OR 157.25 MG C1C2 AND 150.45 MG C3
     Route: 042
     Dates: start: 20190730, end: 20190826
  2. FLUOROURACIL ACCORD [Suspect]
     Active Substance: FLUOROURACIL
     Indication: OESOPHAGEAL ADENOCARCINOMA
     Dosage: 2400 MG / MG OR 4440 MG
     Route: 042
     Dates: start: 20190730, end: 20190828

REACTIONS (3)
  - Off label use [Unknown]
  - Acute respiratory failure [Fatal]
  - Lung disorder [Fatal]

NARRATIVE: CASE EVENT DATE: 20191103
